FAERS Safety Report 21201113 (Version 1)
Quarter: 2022Q3

REPORT INFORMATION
  Report Type: Spontaneous
  Country: CN (occurrence: CN)
  Receive Date: 20220811
  Receipt Date: 20220811
  Transmission Date: 20221026
  Serious: Yes (Life-Threatening, Other)
  Sender: FDA-Public Use
  Company Number: CN-ORGANON-O2208CHN001009

PATIENT
  Age: 56 Year
  Sex: Female
  Weight: 52 kg

DRUGS (1)
  1. SINGULAIR [Suspect]
     Active Substance: MONTELUKAST SODIUM
     Indication: Asthma
     Dosage: 10MG, QD
     Route: 048
     Dates: start: 20220729, end: 20220801

REACTIONS (5)
  - Rash erythematous [Recovering/Resolving]
  - Loss of consciousness [Recovering/Resolving]
  - Foaming at mouth [Recovering/Resolving]
  - Dysphoria [Unknown]
  - Moaning [Unknown]

NARRATIVE: CASE EVENT DATE: 20220801
